FAERS Safety Report 6793044-6 (Version None)
Quarter: 2010Q2

REPORT INFORMATION
  Report Type: 
  Country: None (occurrence: None)
  Receive Date: 20100624
  Receipt Date: 20081112
  Transmission Date: 20101027
  Serious: No
  Sender: FDA-Public Use
  Company Number: US-PFIZER INC-2008096008

PATIENT
  Sex: Female

DRUGS (4)
  1. DEPO-PROVERA SUSPENSION/INJ [Suspect]
     Indication: OFF LABEL USE
     Dates: start: 20080909
  2. DEPO-PROVERA SUSPENSION/INJ [Suspect]
     Indication: UTERINE LEIOMYOMA
  3. ALL OTHER THERAPEUTIC PRODUCTS [Concomitant]
     Indication: ANAEMIA
  4. BENICAR [Concomitant]
     Indication: HYPERTENSION

REACTIONS (2)
  - MENORRHAGIA [None]
  - PAIN [None]
